FAERS Safety Report 15559826 (Version 1)
Quarter: 2018Q4

REPORT INFORMATION
  Report Type: Spontaneous
  Country: ES (occurrence: ES)
  Receive Date: 20181029
  Receipt Date: 20181029
  Transmission Date: 20190205
  Serious: Yes (Hospitalization, Other)
  Sender: FDA-Public Use
  Company Number: ES-ACCORD-089754

PATIENT
  Age: 63 Year
  Sex: Male

DRUGS (7)
  1. ARIPIPRAZOLE. [Suspect]
     Active Substance: ARIPIPRAZOLE
     Indication: BIPOLAR I DISORDER
     Dosage: ORAL SOLUTION 1MG/ML,7 MG, QD
     Route: 048
  2. ARIPIPRAZOLE. [Suspect]
     Active Substance: ARIPIPRAZOLE
     Indication: BIPOLAR I DISORDER
     Dosage: 5 10 MG QD TABLET
     Route: 048
  3. ALENDRONATE SODIUM/ALENDRONIC ACID [Concomitant]
     Indication: NIEMANN-PICK DISEASE
     Dosage: UNK
     Route: 065
  4. ZAVESCA [Concomitant]
     Active Substance: MIGLUSTAT
     Indication: PRODUCT USED FOR UNKNOWN INDICATION
     Dosage: UNK
     Route: 065
  5. LITHIUM. [Concomitant]
     Active Substance: LITHIUM
     Indication: BIPOLAR DISORDER
     Dosage: 400 MG, BID
     Route: 065
  6. CALCIUM CARBONATE/COLECALCIFEROL [Concomitant]
     Indication: NIEMANN-PICK DISEASE
     Dosage: UNK
     Route: 065
  7. LEXAPRO [Concomitant]
     Active Substance: ESCITALOPRAM OXALATE
     Indication: NIEMANN-PICK DISEASE
     Dosage: UNK, TID
     Route: 065
     Dates: start: 20140929

REACTIONS (7)
  - Motor dysfunction [Recovered/Resolved]
  - Dysarthria [Not Recovered/Not Resolved]
  - Suicidal ideation [Unknown]
  - Gait disturbance [Not Recovered/Not Resolved]
  - Apathy [Unknown]
  - Emotional disorder [Unknown]
  - Insomnia [Unknown]
